FAERS Safety Report 7148328-9 (Version None)
Quarter: 2010Q4

REPORT INFORMATION
  Report Type: 
  Country: None (occurrence: None)
  Receive Date: 20101209
  Receipt Date: 20101129
  Transmission Date: 20110411
  Serious: Yes (Other)
  Sender: FDA-Public Use
  Company Number: CA-JNJFOC-20100510580

PATIENT
  Sex: Female
  Weight: 83.5 kg

DRUGS (16)
  1. REMICADE [Suspect]
     Indication: CROHN'S DISEASE
     Route: 042
  2. REMICADE [Suspect]
     Route: 042
  3. REMICADE [Suspect]
     Route: 042
  4. REMICADE [Suspect]
     Route: 042
  5. REMICADE [Suspect]
     Route: 042
  6. VITAMIN B-12 [Concomitant]
  7. HYDROCHLOROTHIAZIDE [Concomitant]
  8. PAROXETINE [Concomitant]
  9. METFORMIN [Concomitant]
  10. DILTIAZEM CD [Concomitant]
  11. BIOCAL D FORTE [Concomitant]
  12. SIMVASTATIN [Concomitant]
     Dosage: BEDTIME
  13. CARVEDILOL [Concomitant]
  14. DIOVAN [Concomitant]
  15. PREVACID [Concomitant]
  16. ASAPHEN [Concomitant]

REACTIONS (2)
  - BLOOD PRESSURE INCREASED [None]
  - CHEST PAIN [None]
